FAERS Safety Report 12906383 (Version 1)
Quarter: 2016Q4

REPORT INFORMATION
  Report Type: Spontaneous
  Country: US (occurrence: US)
  Receive Date: 20161102
  Receipt Date: 20161102
  Transmission Date: 20170207
  Serious: Yes (Hospitalization)
  Sender: FDA-Public Use
  Company Number: None

PATIENT
  Age: 24 Year
  Sex: Female
  Weight: 70.9 kg

DRUGS (6)
  1. ETOPOSIDE (VP-16) [Suspect]
     Active Substance: ETOPOSIDE
     Dates: end: 20160326
  2. PREDNISONE. [Suspect]
     Active Substance: PREDNISONE
     Dates: end: 20160327
  3. RITUXIMAB (MOAB C2B8 ANTI CD20, CHIMERIC) [Suspect]
     Active Substance: RITUXIMAB
     Dates: end: 20160327
  4. CYCLOPHOSPHAMIDE. [Suspect]
     Active Substance: CYCLOPHOSPHAMIDE
     Dates: end: 20160328
  5. DOXORUBICIN HYDROCHLORIDE. [Suspect]
     Active Substance: DOXORUBICIN HYDROCHLORIDE
     Dates: end: 20160323
  6. VINCRISTINE SULFATE. [Suspect]
     Active Substance: VINCRISTINE SULFATE
     Dates: end: 20160326

REACTIONS (4)
  - Nausea [None]
  - Post lumbar puncture syndrome [None]
  - Vomiting [None]
  - Neutropenia [None]

NARRATIVE: CASE EVENT DATE: 20160330
